FAERS Safety Report 7898073-7 (Version None)
Quarter: 2011Q4

REPORT INFORMATION
  Report Type: 
  Country: None (occurrence: None)
  Receive Date: 20111107
  Receipt Date: 20111101
  Transmission Date: 20120403
  Serious: Yes (Congenital Anomaly, Other)
  Sender: FDA-Public Use
  Company Number: US-PFIZER INC-2011208248

PATIENT
  Sex: Female
  Weight: 2.41 kg

DRUGS (5)
  1. TYLENOL-500 [Concomitant]
     Indication: MIGRAINE
     Dosage: EVERY 4 HOURS
     Route: 064
     Dates: start: 19991117
  2. MULTI-VITAMINS [Concomitant]
     Dosage: ONCE A DAY
     Route: 064
     Dates: start: 19991123
  3. ZOLOFT [Suspect]
     Indication: ANXIETY
     Dosage: UNK
     Route: 064
     Dates: end: 19990501
  4. ZOLOFT [Suspect]
     Indication: DEPRESSION
     Dosage: 50 MG, 1X/DAY
     Route: 064
     Dates: start: 19990921
  5. ZOLOFT [Suspect]
     Dosage: 100 MG, 1X/DAY
     Route: 064
     Dates: start: 19991123

REACTIONS (2)
  - MATERNAL EXPOSURE TIMING UNSPECIFIED [None]
  - ATRIAL SEPTAL DEFECT [None]
